FAERS Safety Report 5329016-8 (Version None)
Quarter: 2007Q2

REPORT INFORMATION
  Report Type: 
  Country: None (occurrence: None)
  Receive Date: 20070518
  Receipt Date: 20070512
  Transmission Date: 20071010
  Serious: No
  Sender: FDA-Public Use
  Company Number: IN-BAXTER-2007BH004473

PATIENT
  Age: 38 Year
  Sex: Male
  Weight: 70 kg

DRUGS (5)
  1. LACTATED RINGER'S [Suspect]
     Indication: GASTROINTESTINAL INFECTION
     Dosage: DOSE UNIT:UNKNOWN
     Route: 042
     Dates: start: 20070509
  2. OFLOXACIN [Concomitant]
     Indication: DRUG USE FOR UNKNOWN INDICATION
     Dosage: DOSE UNIT:UNKNOWN
     Route: 065
  3. AMIKACIN [Concomitant]
     Indication: DRUG USE FOR UNKNOWN INDICATION
     Dosage: DOSE UNIT:UNKNOWN
     Route: 065
  4. METROGYL [Concomitant]
     Indication: DRUG USE FOR UNKNOWN INDICATION
     Dosage: DOSE UNIT:UNKNOWN
     Route: 065
  5. PANTOPRAZOLE SODIUM [Concomitant]
     Indication: DRUG USE FOR UNKNOWN INDICATION
     Dosage: DOSE UNIT:UNKNOWN
     Route: 065

REACTIONS (4)
  - CHILLS [None]
  - CYANOSIS [None]
  - HYPOTENSION [None]
  - PYREXIA [None]
